FAERS Safety Report 7287365-0 (Version None)
Quarter: 2011Q1

REPORT INFORMATION
  Report Type: 
  Country: None (occurrence: None)
  Receive Date: 20110208
  Receipt Date: 20110208
  Transmission Date: 20110831
  Serious: No
  Sender: FDA-Public Use
  Company Number: None

PATIENT
  Age: 48 Year
  Sex: Female
  Weight: 92.0802 kg

DRUGS (2)
  1. CYCLOSET [Suspect]
     Indication: DIABETES MELLITUS
     Dosage: 1 PILL DAILY
     Dates: start: 20110131, end: 20110203
  2. CYCLOSET [Suspect]
     Indication: BLOOD GLUCOSE INCREASED
     Dosage: 1 PILL DAILY
     Dates: start: 20110131, end: 20110203

REACTIONS (12)
  - DYSPNOEA [None]
  - GAIT DISTURBANCE [None]
  - NAUSEA [None]
  - CHEST PAIN [None]
  - MIGRAINE [None]
  - DIZZINESS [None]
  - EPISTAXIS [None]
  - MOOD SWINGS [None]
  - SOMNOLENCE [None]
  - ARTHRALGIA [None]
  - DIARRHOEA [None]
  - FATIGUE [None]
